FAERS Safety Report 4337295-9 (Version None)
Quarter: 2004Q2

REPORT INFORMATION
  Report Type: 
  Country: None (occurrence: None)
  Receive Date: 20040408
  Receipt Date: 20040323
  Transmission Date: 20050107
  Serious: Yes (Death, Life-Threatening, Hospitalization)
  Sender: FDA-Public Use
  Company Number: DSA_24163_2004

PATIENT
  Age: 80 Year
  Sex: Female

DRUGS (7)
  1. HERBESSER [Suspect]
     Indication: HYPERTENSIVE EMERGENCY
     Dosage: 4 MCG/KG/MIN Q DAY IV
     Route: 042
     Dates: start: 20040304, end: 20040304
  2. HERBESSER [Suspect]
     Indication: HYPERTENSIVE EMERGENCY
     Dosage: 3 MCG/KG/MIN Q DAY IV
     Route: 042
     Dates: start: 20040303, end: 20040304
  3. HERBESSER [Suspect]
     Indication: HYPERTENSIVE EMERGENCY
     Dosage: 2 MCG/KG/MIN Q DAY IV
     Route: 042
     Dates: start: 20040303, end: 20040303
  4. MEXITIL [Suspect]
     Indication: ARRHYTHMIA
     Dosage: 400 MG Q DAY PO
     Route: 048
     Dates: start: 20040304, end: 20040304
  5. MIDAZOLAM HCL [Concomitant]
  6. PENMALIN [Concomitant]
  7. CLINDAMYCIN HCL [Concomitant]

REACTIONS (19)
  - BLOOD CREATINE PHOSPHOKINASE INCREASED [None]
  - BLOOD LACTATE DEHYDROGENASE INCREASED [None]
  - BLOOD PRESSURE DECREASED [None]
  - BLOOD SODIUM DECREASED [None]
  - BRADYCARDIA [None]
  - CARDIAC ARREST [None]
  - DEPRESSED LEVEL OF CONSCIOUSNESS [None]
  - DISEASE RECURRENCE [None]
  - HAEMORRHAGE [None]
  - HYPERTENSION [None]
  - INTRACRANIAL ANEURYSM [None]
  - MYDRIASIS [None]
  - OCCULT BLOOD POSITIVE [None]
  - PCO2 DECREASED [None]
  - RUPTURED CEREBRAL ANEURYSM [None]
  - VENTRICULAR EXTRASYSTOLES [None]
  - VENTRICULAR HYPERTROPHY [None]
  - VENTRICULAR TACHYCARDIA [None]
  - WHITE BLOOD CELL COUNT INCREASED [None]
